FAERS Safety Report 13022086 (Version 1)
Quarter: 2016Q4

REPORT INFORMATION
  Report Type: Report from Study
  Country: US (occurrence: US)
  Receive Date: 20161213
  Receipt Date: 20161213
  Transmission Date: 20170207
  Serious: Yes (Other)
  Sender: FDA-Public Use
  Company Number: US-ROCHE-1866116

PATIENT
  Sex: Female

DRUGS (2)
  1. ERIVEDGE [Suspect]
     Active Substance: VISMODEGIB
     Route: 065
     Dates: end: 201504
  2. ERIVEDGE [Suspect]
     Active Substance: VISMODEGIB
     Indication: BASAL CELL CARCINOMA
     Dosage: 6-MONTH TREATMENT REGIMEN
     Route: 065
     Dates: start: 201405, end: 20141210

REACTIONS (6)
  - Basal cell carcinoma [Not Recovered/Not Resolved]
  - Dysgeusia [Recovered/Resolved]
  - Ageusia [Recovered/Resolved]
  - Alopecia [Not Recovered/Not Resolved]
  - Parosmia [Recovered/Resolved]
  - Myoclonus [Recovered/Resolved]
